FAERS Safety Report 9342902 (Version 1)
Quarter: 2013Q2

REPORT INFORMATION
  Report Type: Spontaneous
  Country: CN (occurrence: CN)
  Receive Date: 20130611
  Receipt Date: 20130611
  Transmission Date: 20140414
  Serious: Yes (Hospitalization)
  Sender: FDA-Public Use
  Company Number: CN-GLAXOSMITHKLINE-B0898504A

PATIENT
  Age: 12 Year
  Sex: Male
  Weight: 36 kg

DRUGS (1)
  1. LAMICTAL [Suspect]
     Indication: EPILEPSY
     Dosage: .25TAB PER DAY
     Route: 048
     Dates: start: 20120323, end: 20120327

REACTIONS (7)
  - Rash generalised [Recovered/Resolved]
  - Pyrexia [Recovered/Resolved]
  - Rash papular [Recovered/Resolved]
  - Oral mucosal eruption [Recovered/Resolved]
  - Chapped lips [Recovered/Resolved]
  - Tongue eruption [Recovered/Resolved]
  - Pharyngeal disorder [Recovered/Resolved]
